FAERS Safety Report 8961052 (Version 2)
Quarter: 2013Q1

REPORT INFORMATION
  Report Type: Spontaneous
  Country: FR (occurrence: FR)
  Receive Date: 20121212
  Receipt Date: 20130207
  Transmission Date: 20140127
  Serious: Yes (Hospitalization)
  Sender: FDA-Public Use
  Company Number: FR-ACTELION-A-CH2012-76047

PATIENT
  Sex: Male

DRUGS (3)
  1. TRACLEER [Suspect]
     Indication: PRODUCT USED FOR UNKNOWN INDICATION
     Dosage: UNK
     Route: 048
     Dates: end: 20121206
  2. ATORVASTATIN [Interacting]
     Dosage: UNK
     Dates: end: 20121207
  3. AZATHIOPRINE [Concomitant]

REACTIONS (3)
  - Liver function test abnormal [Unknown]
  - Hepatocellular injury [Unknown]
  - Drug interaction [Unknown]
